FAERS Safety Report 8330219-9 (Version None)
Quarter: 2012Q2

REPORT INFORMATION
  Report Type: 
  Country: None (occurrence: None)
  Receive Date: 20120430
  Receipt Date: 20120419
  Transmission Date: 20120825
  Serious: Yes (Hospitalization)
  Sender: FDA-Public Use
  Company Number: 2012SP021097

PATIENT
  Age: 4 Year
  Sex: Female

DRUGS (2)
  1. DESLORATADINE [Suspect]
     Indication: ACNE
     Dosage: PO
     Route: 048
     Dates: start: 20120418
  2. ATARAX [Suspect]
     Indication: ACNE
     Dates: start: 20120418

REACTIONS (1)
  - MUSCLE SPASMS [None]
